FAERS Safety Report 17168604 (Version 2)
Quarter: 2020Q1

REPORT INFORMATION
  Report Type: Report from Study
  Country: None (occurrence: US)
  Receive Date: 20191218
  Receipt Date: 20200331
  Transmission Date: 20200409
  Serious: Yes (Hospitalization, Other)
  Sender: FDA-Public Use
  Company Number: US-ABBVIE-19K-163-3184262-00

PATIENT
  Sex: Female

DRUGS (2)
  1. HUMIRA [Suspect]
     Active Substance: ADALIMUMAB
     Route: 058
  2. HUMIRA [Suspect]
     Active Substance: ADALIMUMAB
     Indication: RHEUMATOID ARTHRITIS
     Route: 058

REACTIONS (16)
  - Dizziness [Unknown]
  - Blood insulin abnormal [Unknown]
  - Arthralgia [Recovering/Resolving]
  - White blood cell count decreased [Unknown]
  - Knee operation [Unknown]
  - Nasopharyngitis [Unknown]
  - Dehydration [Unknown]
  - Diabetes mellitus [Unknown]
  - Carcinoid tumour of the liver [Unknown]
  - Rhinalgia [Unknown]
  - Sarcoidosis [Unknown]
  - Diarrhoea [Unknown]
  - Skin cancer [Unknown]
  - Platelet count decreased [Unknown]
  - Eye contusion [Unknown]
  - Fall [Unknown]
